APPROVED DRUG PRODUCT: TRIENTINE HYDROCHLORIDE
Active Ingredient: TRIENTINE HYDROCHLORIDE
Strength: 250MG
Dosage Form/Route: CAPSULE;ORAL
Application: A216356 | Product #001 | TE Code: AB
Applicant: HETERO LABS LTD UNIT III
Approved: Jun 23, 2022 | RLD: No | RS: No | Type: RX